FAERS Safety Report 9550243 (Version 1)
Quarter: 2013Q3

REPORT INFORMATION
  Report Type: Spontaneous
  Country: US (occurrence: US)
  Receive Date: 20130924
  Receipt Date: 20130924
  Transmission Date: 20140515
  Serious: No
  Sender: FDA-Public Use
  Company Number: US-SANOFI-AVENTIS-2013SA065634

PATIENT
  Age: 64 Year
  Sex: Female

DRUGS (11)
  1. AUBAGIO [Suspect]
     Indication: MULTIPLE SCLEROSIS
     Route: 048
     Dates: start: 20130619
  2. ROPINIROLE HYDROCHLORIDE [Concomitant]
     Route: 065
  3. ATENOLOL [Concomitant]
     Route: 065
  4. GABAPENTIN [Concomitant]
     Route: 065
  5. ENALAPRIL [Concomitant]
     Route: 065
  6. UNKNOWDRUG [Concomitant]
     Route: 065
  7. AMITRIPTYLINE HYDROCHLORIDE [Concomitant]
     Route: 065
  8. ADDERALL [Concomitant]
     Route: 065
  9. ACETYLSALICYLIC ACID [Concomitant]
     Route: 065
  10. VITAMIN D [Concomitant]
     Dosage: DOSE:5000 UNIT(S)
     Route: 065
  11. NUEDEXTA [Concomitant]
     Dosage: DOSE- 20-10 MG
     Route: 065

REACTIONS (5)
  - Depression [Recovering/Resolving]
  - Urinary tract infection [Not Recovered/Not Resolved]
  - Urinary incontinence [Not Recovered/Not Resolved]
  - Diarrhoea [Unknown]
  - Frequent bowel movements [Unknown]
